FAERS Safety Report 13447506 (Version 1)
Quarter: 2017Q2

REPORT INFORMATION
  Report Type: Spontaneous
  Country: US (occurrence: US)
  Receive Date: 20170414
  Receipt Date: 20170414
  Transmission Date: 20170916
  Serious: Yes (Hospitalization)
  Sender: FDA-Public Use
  Company Number: None

PATIENT
  Age: 4 Year
  Sex: Male

DRUGS (1)
  1. TOBRAMYCIN. [Suspect]
     Active Substance: TOBRAMYCIN
     Indication: TRACHEOSTOMY
     Dosage: 300MG TWICE A DAY FOR 28 DAYS ON, 28 DAYS OFF INHALATION
     Route: 055
     Dates: start: 20161222

REACTIONS (1)
  - Seizure [None]

NARRATIVE: CASE EVENT DATE: 20170310
